FAERS Safety Report 5376096-X (Version None)
Quarter: 2007Q3

REPORT INFORMATION
  Report Type: 
  Country: None (occurrence: None)
  Receive Date: 20070702
  Receipt Date: 20070622
  Transmission Date: 20080115
  Serious: Yes (Life-Threatening, Hospitalization)
  Sender: FDA-Public Use
  Company Number: A0659751A

PATIENT
  Age: 64 Year
  Sex: Female
  Weight: 79 kg

DRUGS (2)
  1. TOPOTECAN [Suspect]
     Dosage: 1.1MGM2 PER DAY
     Route: 048
     Dates: start: 20070507
  2. RADIATION [Suspect]
     Dosage: 3GY PER DAY
     Dates: start: 20070507

REACTIONS (9)
  - ANAEMIA [None]
  - FATIGUE [None]
  - GENERAL PHYSICAL HEALTH DETERIORATION [None]
  - LEUKOPENIA [None]
  - NEUTROPENIA [None]
  - PANCYTOPENIA [None]
  - PYREXIA [None]
  - SYNCOPE [None]
  - THROMBOCYTOPENIA [None]
